FAERS Safety Report 7809335-3 (Version None)
Quarter: 2011Q4

REPORT INFORMATION
  Report Type: 
  Country: None (occurrence: None)
  Receive Date: 20111007
  Receipt Date: 20110929
  Transmission Date: 20120403
  Serious: Yes (Other)
  Sender: FDA-Public Use
  Company Number: 2011SP046460

PATIENT
  Sex: Female

DRUGS (2)
  1. CLARITIN [Suspect]
     Indication: SEASONAL ALLERGY
     Dosage: 10 MG;ONCE;PO
     Route: 048
     Dates: start: 20110928
  2. ATENOLOL [Concomitant]

REACTIONS (3)
  - CHILLS [None]
  - TREMOR [None]
  - BLOOD PRESSURE INCREASED [None]
